FAERS Safety Report 6184835-3 (Version None)
Quarter: 2009Q2

REPORT INFORMATION
  Report Type: 
  Country: None (occurrence: None)
  Receive Date: 20090508
  Receipt Date: 20090428
  Transmission Date: 20091009
  Serious: Yes (Hospitalization, Other)
  Sender: FDA-Public Use
  Company Number: US-PFIZER INC-2007077734

PATIENT
  Sex: Female
  Weight: 81.633 kg

DRUGS (10)
  1. CHANTIX [Suspect]
     Indication: SMOKING CESSATION THERAPY
     Dosage: 1 MG, 2X/DAY
     Dates: start: 20070829
  2. POTASSIUM CHLORIDE [Concomitant]
     Dosage: UNK
     Dates: end: 20070101
  3. MULTI-VITAMINS [Concomitant]
  4. PROZAC [Concomitant]
     Dosage: UNK
  5. HYDROCHLOROTHIAZIDE [Concomitant]
     Indication: HYPERTENSION
     Dosage: UNK
     Dates: end: 20070101
  6. PRILOSEC [Concomitant]
     Indication: ABDOMINAL DISCOMFORT
     Dosage: UNK
  7. TRAZODONE [Concomitant]
     Dosage: UNK
  8. TRAMADOL HYDROCHLORIDE AND ACETAMINOPHEN [Concomitant]
     Dosage: UNK
  9. CYMBALTA [Concomitant]
     Dosage: UNK
  10. ESTRADIOL [Concomitant]
     Dosage: UNK

REACTIONS (5)
  - DEHYDRATION [None]
  - DIARRHOEA [None]
  - IRRITABLE BOWEL SYNDROME [None]
  - MALAISE [None]
  - VOMITING [None]
